FAERS Safety Report 6730968-X (Version None)
Quarter: 2010Q2

REPORT INFORMATION
  Report Type: 
  Country: None (occurrence: None)
  Receive Date: 20100514
  Receipt Date: 20100430
  Transmission Date: 20101027
  Serious: Yes (Life-Threatening)
  Sender: FDA-Public Use
  Company Number: DSA_43116_2010

PATIENT
  Age: 79 Year
  Sex: Female

DRUGS (10)
  1. DILTIAZEM HCL [Suspect]
     Indication: PULMONARY ARTERIAL HYPERTENSION
     Dosage: (200 MG QD ORAL)
     Route: 048
     Dates: start: 20100304, end: 20100308
  2. FLECAINE (FLECAINE) 150 MG (NOT SPECIFIED) [Suspect]
     Indication: PULMONARY ARTERIAL HYPERTENSION
     Dosage: (150 MG QD ORAL)
     Route: 048
     Dates: start: 20100304, end: 20100308
  3. REVATIO [Suspect]
     Indication: PULMONARY ARTERIAL HYPERTENSION
     Dosage: (5 MG TID ORAL), (20 MG TID ORAL)
     Route: 048
     Dates: start: 20100303, end: 20100305
  4. REVATIO [Suspect]
     Indication: PULMONARY ARTERIAL HYPERTENSION
     Dosage: (5 MG TID ORAL), (20 MG TID ORAL)
     Route: 048
     Dates: start: 20100306, end: 20100307
  5. CHRONADALATE [Concomitant]
  6. TRACLEER [Concomitant]
  7. DELURSAN [Concomitant]
  8. CORTANCYL [Concomitant]
  9. IMUREL [Concomitant]
  10. LASILIX /00032601/ [Concomitant]

REACTIONS (3)
  - INCORRECT DOSE ADMINISTERED [None]
  - OEDEMA [None]
  - RENAL FAILURE ACUTE [None]
